FAERS Safety Report 10079250 (Version 2)
Quarter: 2014Q2

REPORT INFORMATION
  Report Type: Spontaneous
  Country: US (occurrence: US)
  Receive Date: 20140415
  Receipt Date: 20140415
  Transmission Date: 20141212
  Serious: Yes (Other)
  Sender: FDA-Public Use
  Company Number: CHPA2014US005012

PATIENT
  Age: 65 Year
  Sex: Female

DRUGS (1)
  1. PRIVATE LABEL STEP 1 21MG ACCT UNKNOWN [Suspect]
     Indication: SMOKING CESSATION THERAPY
     Dosage: UNK
     Route: 062
     Dates: start: 20140322

REACTIONS (2)
  - Arthritis [Unknown]
  - Carpal tunnel syndrome [Unknown]
